FAERS Safety Report 5760684-2 (Version None)
Quarter: 2008Q2

REPORT INFORMATION
  Report Type: 
  Country: None (occurrence: None)
  Receive Date: 20080606
  Receipt Date: 20080529
  Transmission Date: 20081010
  Serious: Yes (Other)
  Sender: FDA-Public Use
  Company Number: GB-BRISTOL-MYERS SQUIBB COMPANY-14176937

PATIENT
  Age: 71 Year
  Sex: Male
  Weight: 100 kg

DRUGS (14)
  1. METFORMIN HCL [Suspect]
     Dosage: RECEIVED 2550 MG FROM 12APR08 TO 13APR08.
     Dates: start: 20080412, end: 20080414
  2. ACTOS [Suspect]
     Dates: end: 20080418
  3. INSULIN [Suspect]
     Dates: start: 20080414, end: 20080417
  4. ATORVASTATIN [Concomitant]
  5. AMIODARONE HCL [Concomitant]
     Indication: ATRIAL FIBRILLATION
  6. ASPIRIN [Concomitant]
  7. BECLOMETHASONE DIPROPIONATE [Concomitant]
  8. CEFTRIAXONE [Concomitant]
     Route: 042
  9. CLEXANE [Concomitant]
     Indication: MALIGNANT NEOPLASM PROGRESSION
  10. ESOMEPRAZOLE [Concomitant]
  11. LISINOPRIL [Concomitant]
  12. METRONIDAZOLE HCL [Concomitant]
     Route: 042
  13. ALBUTEROL [Concomitant]
  14. SILDENAFIL CITRATE [Concomitant]

REACTIONS (3)
  - LOCAL SWELLING [None]
  - OEDEMA PERIPHERAL [None]
  - PITTING OEDEMA [None]
